FAERS Safety Report 6567867-2 (Version None)
Quarter: 2010Q1

REPORT INFORMATION
  Report Type: 
  Country: None (occurrence: None)
  Receive Date: 20100203
  Receipt Date: 20100122
  Transmission Date: 20100710
  Serious: Yes (Other)
  Sender: FDA-Public Use
  Company Number: PHHY2010DE04685

PATIENT
  Age: 50 Year
  Sex: Male

DRUGS (1)
  1. ICANDRA [Suspect]
     Indication: DIABETES MELLITUS
     Dosage: 1000/50 MG

REACTIONS (2)
  - ABNORMAL BEHAVIOUR [None]
  - FEELING ABNORMAL [None]
